FAERS Safety Report 15808918 (Version 1)
Quarter: 2019Q1

REPORT INFORMATION
  Report Type: Report from Study
  Country: US (occurrence: US)
  Receive Date: 20190110
  Receipt Date: 20190110
  Transmission Date: 20190417
  Serious: Yes (Hospitalization, Other)
  Sender: FDA-Public Use
  Company Number: US-GILEAD-2019-0384124

PATIENT
  Age: 77 Year
  Sex: Female

DRUGS (1)
  1. RANOLAZINE. [Suspect]
     Active Substance: RANOLAZINE
     Indication: ANGINA PECTORIS
     Dosage: 500 MG, BID
     Route: 048
     Dates: start: 200401

REACTIONS (3)
  - Stent placement [Unknown]
  - Unevaluable event [Unknown]
  - Angina pectoris [Unknown]

NARRATIVE: CASE EVENT DATE: 2017
